FAERS Safety Report 5022398-6 (Version None)
Quarter: 2006Q2

REPORT INFORMATION
  Report Type: 
  Country: None (occurrence: None)
  Receive Date: 20060502
  Receipt Date: 20050714
  Transmission Date: 20061013
  Serious: Yes (Hospitalization)
  Sender: FDA-Public Use
  Company Number: PHEH2005US07711

PATIENT
  Age: 69 Year
  Sex: Male
  Weight: 86.6 kg

DRUGS (3)
  1. LOTREL [Suspect]
     Indication: HYPERTENSION
     Dosage: 10 MG AML/20 MG BEN, QD, ORAL
     Route: 048
     Dates: start: 20020917, end: 20050616
  2. DIOVAN HCT [Concomitant]
  3. LIPITOR /NET/ (ATORVASTATIN CALCIUM) [Concomitant]

REACTIONS (2)
  - DYSPHAGIA [None]
  - LARYNGEAL OEDEMA [None]
